FAERS Safety Report 4675596-5 (Version None)
Quarter: 2005Q2

REPORT INFORMATION
  Report Type: 
  Country: None (occurrence: None)
  Receive Date: 20050527
  Receipt Date: 20050420
  Transmission Date: 20051028
  Serious: No
  Sender: FDA-Public Use
  Company Number: US-BRISTOL-MYERS SQUIBB COMPANY-12942769

PATIENT
  Age: 10 Year
  Sex: Female

DRUGS (3)
  1. ABILIFY [Suspect]
     Indication: BIPOLAR I DISORDER
     Dates: start: 20050315
  2. MULTI-VITAMIN [Concomitant]
  3. TPN [Concomitant]

REACTIONS (1)
  - ALOPECIA [None]
